FAERS Safety Report 19081020 (Version 1)
Quarter: 2021Q2

REPORT INFORMATION
  Report Type: Spontaneous
  Country: GB (occurrence: GB)
  Receive Date: 20210401
  Receipt Date: 20210401
  Transmission Date: 20210717
  Serious: Yes (Hospitalization, Other)
  Sender: FDA-Public Use
  Company Number: GB-ASTRAZENECA-2021A191647

PATIENT
  Age: 74 Year
  Sex: Male
  Weight: 100 kg

DRUGS (5)
  1. PROCHLORPERAZINE. [Concomitant]
     Active Substance: PROCHLORPERAZINE
     Dosage: 1 TWO TIMES A DAY
     Route: 065
     Dates: start: 20210303, end: 20210310
  2. ETORICOXIB. [Concomitant]
     Active Substance: ETORICOXIB
     Dosage: 1 EVERY DAY OR NHS/CCG SWTICH FROM AROC.
     Route: 065
     Dates: start: 20200917
  3. ATORVASTATIN [Concomitant]
     Active Substance: ATORVASTATIN
     Dosage: 1 EVERY DAY
     Route: 065
     Dates: start: 20200917
  4. OMEPRAZOLE. [Suspect]
     Active Substance: OMEPRAZOLE
     Dosage: 20 EVERY DAY
     Route: 048
     Dates: start: 20210126
  5. TAMSULOSIN HYDROCHLORIDE. [Concomitant]
     Active Substance: TAMSULOSIN HYDROCHLORIDE
     Dosage: 1 EVERY DAY
     Route: 065
     Dates: start: 20200917

REACTIONS (1)
  - Acute kidney injury [Recovering/Resolving]

NARRATIVE: CASE EVENT DATE: 20210319
